FAERS Safety Report 8374646-2 (Version None)
Quarter: 2012Q2

REPORT INFORMATION
  Report Type: 
  Country: None (occurrence: None)
  Receive Date: 20120521
  Receipt Date: 20111225
  Transmission Date: 20120825
  Serious: No
  Sender: FDA-Public Use
  Company Number: US-ASTRAZENECA-2011SE78794

PATIENT
  Sex: Female

DRUGS (6)
  1. AMOXICILLIN [Concomitant]
     Dosage: UNKNOWN
  2. ASPIRIN [Concomitant]
     Dosage: UNKNOWN
  3. PRILOSEC OTC [Suspect]
     Route: 048
  4. PREDNISONE [Concomitant]
     Dosage: UNKNOWN
  5. HYDROCHLOROTHIAZIDE [Concomitant]
     Dosage: UNKNOWN
  6. ALPRAZOLAM [Concomitant]
     Dosage: UNKNOWN

REACTIONS (2)
  - FLUSHING [None]
  - FEELING ABNORMAL [None]
